FAERS Safety Report 21299468 (Version 1)
Quarter: 2022Q3

REPORT INFORMATION
  Report Type: Spontaneous
  Country: US (occurrence: None)
  Receive Date: 20220906
  Receipt Date: 20220906
  Transmission Date: 20221027
  Serious: No
  Sender: FDA-Public Use
  Company Number: None

PATIENT

DRUGS (3)
  1. PYRIDOSTIGMINE [Suspect]
     Active Substance: PYRIDOSTIGMINE
  2. RIVASTIGMINE TARTRATE [Suspect]
     Active Substance: RIVASTIGMINE TARTRATE
     Route: 048
  3. SCOPOLAMINE [Suspect]
     Active Substance: SCOPOLAMINE

REACTIONS (6)
  - Agitation [None]
  - Psychotic disorder [None]
  - Toxicity to various agents [None]
  - Product prescribing error [None]
  - Wrong product administered [None]
  - Product supply issue [None]
